FAERS Safety Report 10800533 (Version 1)
Quarter: 2015Q1

REPORT INFORMATION
  Report Type: Spontaneous
  Country: US (occurrence: US)
  Receive Date: 20150216
  Receipt Date: 20150216
  Transmission Date: 20150721
  Serious: No
  Sender: FDA-Public Use
  Company Number: US-ALLERGAN-1407656US

PATIENT
  Age: 6 Decade
  Sex: Female

DRUGS (2)
  1. RESTASIS [Suspect]
     Active Substance: CYCLOSPORINE
     Indication: DRY EYE
     Dosage: UNK
     Route: 047
     Dates: start: 2012
  2. VITAMINS [Concomitant]
     Active Substance: VITAMINS
     Indication: SUPPLEMENTATION THERAPY

REACTIONS (12)
  - Erythema of eyelid [Recovered/Resolved]
  - Drug hypersensitivity [Recovered/Resolved]
  - Skin fissures [Recovered/Resolved]
  - Eye pruritus [Recovered/Resolved]
  - Urticaria [Recovered/Resolved]
  - Ocular hyperaemia [Recovered/Resolved]
  - Skin hyperpigmentation [Recovered/Resolved]
  - Eyelid skin dryness [Recovered/Resolved]
  - Wrong technique in drug usage process [Unknown]
  - Eye irritation [Recovered/Resolved]
  - Eye swelling [Not Recovered/Not Resolved]
  - Eyelids pruritus [Recovered/Resolved]

NARRATIVE: CASE EVENT DATE: 201308
